FAERS Safety Report 5906537-8 (Version None)
Quarter: 2008Q4

REPORT INFORMATION
  Report Type: 
  Country: None (occurrence: None)
  Receive Date: 20081002
  Receipt Date: 20080911
  Transmission Date: 20090506
  Serious: No
  Sender: FDA-Public Use
  Company Number: US-B.I. PHARMACEUTICALS,INC./RIDGEFIELD-2006-BP-14405BP

PATIENT
  Sex: Male

DRUGS (4)
  1. MIRAPEX [Suspect]
     Indication: PARKINSON'S DISEASE
     Dosage: .75MG
     Route: 048
     Dates: start: 20050801, end: 20060501
  2. CARBIDOPA/LEVODPA 25/100 [Concomitant]
     Indication: PARKINSON'S DISEASE
     Dates: start: 20060501
  3. CARBIDOPA/LEVODPA 25/100 [Concomitant]
  4. FLOVENT [Concomitant]
     Indication: ASTHMA
     Dates: start: 20000101

REACTIONS (7)
  - ANXIETY [None]
  - DEPRESSION [None]
  - EMOTIONAL DISTRESS [None]
  - FEAR [None]
  - PAIN [None]
  - PATHOLOGICAL GAMBLING [None]
  - STRESS [None]
